FAERS Safety Report 8366988-1 (Version None)
Quarter: 2012Q2

REPORT INFORMATION
  Report Type: 
  Country: None (occurrence: None)
  Receive Date: 20120517
  Receipt Date: 20120502
  Transmission Date: 20120825
  Serious: Yes (Other)
  Sender: FDA-Public Use
  Company Number: US-ROCHE-1067301

PATIENT
  Sex: Male

DRUGS (9)
  1. LEVOTHYROXINE SODIUM [Concomitant]
     Route: 065
  2. IMMUNE GLOBULIN (HUMAN) [Suspect]
     Route: 058
     Dates: start: 20111025
  3. IMMUNE GLOBULIN (HUMAN) [Suspect]
     Indication: B-CELL LYMPHOMA
     Route: 058
     Dates: start: 20111019
  4. FISH OIL [Concomitant]
     Route: 065
  5. RITUXAN [Suspect]
     Indication: B-CELL LYMPHOMA
     Route: 065
  6. DILTIAZEM HYDROCHLORIDE [Concomitant]
     Route: 065
  7. ERGOCALCIFEROL [Concomitant]
     Route: 065
  8. CYANOCOBALAMIN [Concomitant]
     Route: 065
  9. PYRIDOXINE HYDROCHLORIDE [Concomitant]
     Route: 065

REACTIONS (17)
  - PYREXIA [None]
  - BONE MARROW FAILURE [None]
  - COUGH [None]
  - DRY SKIN [None]
  - OROPHARYNGEAL PAIN [None]
  - NAUSEA [None]
  - LETHARGY [None]
  - ASTHENIA [None]
  - PRURITUS [None]
  - CHILLS [None]
  - INFUSION SITE ERYTHEMA [None]
  - DECREASED APPETITE [None]
  - FLUSHING [None]
  - RASH [None]
  - VIRAL INFECTION [None]
  - FEELING ABNORMAL [None]
  - BLISTER [None]
